FAERS Safety Report 4404610-7 (Version None)
Quarter: 2004Q3

REPORT INFORMATION
  Report Type: 
  Country: None (occurrence: None)
  Receive Date: 20040720
  Receipt Date: 20040707
  Transmission Date: 20050211
  Serious: No
  Sender: FDA-Public Use
  Company Number: 04P-122-0266380-00

PATIENT
  Age: 62 Year
  Sex: Female

DRUGS (1)
  1. ISOPTIN [Suspect]
     Dosage: 40 MG, 1 IN 1 D,ORAL
     Route: 048
     Dates: start: 20010117

REACTIONS (4)
  - DEMYELINATING POLYNEUROPATHY [None]
  - MOTOR DYSFUNCTION [None]
  - OEDEMA PERIPHERAL [None]
  - SENSORY DISTURBANCE [None]
